FAERS Safety Report 16314266 (Version 1)
Quarter: 2019Q2

REPORT INFORMATION
  Report Type: Spontaneous
  Country: US (occurrence: US)
  Receive Date: 20190515
  Receipt Date: 20190515
  Transmission Date: 20190711
  Serious: Yes (Hospitalization)
  Sender: FDA-Public Use
  Company Number: US-PFIZER INC-2019203223

PATIENT
  Age: 60 Year
  Sex: Female
  Weight: 88.45 kg

DRUGS (2)
  1. GABAPENTIN. [Suspect]
     Active Substance: GABAPENTIN
     Indication: PAIN
  2. GABAPENTIN. [Suspect]
     Active Substance: GABAPENTIN
     Indication: PERIPHERAL SWELLING
     Dosage: UNK

REACTIONS (2)
  - Chest pain [Unknown]
  - Drug ineffective for unapproved indication [Unknown]
